FAERS Safety Report 9204470 (Version 1)
Quarter: 2013Q1

REPORT INFORMATION
  Report Type: Spontaneous
  Country: US (occurrence: None)
  Receive Date: 20120709
  Receipt Date: 20120709
  Transmission Date: 20140127
  Serious: No
  Sender: FDA-Public Use
  Company Number: 2012HGS-003437

PATIENT
  Age: 45 Year
  Sex: Female
  Weight: 141.98 kg

DRUGS (19)
  1. BENLYSTA [Suspect]
     Indication: SYSTEMIC LUPUS ERYTHEMATOSUS
     Dosage: 1 IN 28 D
     Route: 041
     Dates: start: 20120319
  2. PREDNISONE (PREDNISONE) (PREDNISONE) [Concomitant]
  3. PLAQUENIL (HYDROXYCHLOROQUINE PHOSPHATE) (HYDROXYCHLOROQUINE PHOSHATE) [Concomitant]
  4. LANTUS INSULIN (INSULIN HUMAN ZINC SUSPENSION) (INSULIN HUMAN ZINC SUSPENSION) [Concomitant]
  5. SYNTHROID (LEVOTHYROXINE SODIUM) (LEVOTHYROXINE SODIUM) [Concomitant]
  6. MELOXICAM (MELOXICAM) (MELOXICAM) [Concomitant]
  7. COUMADIN (WARFARIN SODIUM) (WARFARIN SODIUM) [Concomitant]
  8. SINGULAIR [Concomitant]
  9. PROAIR (SALBUTAMOL SULFATE) (MONTELUKAST SODIUM) [Concomitant]
  10. DURAGESIC PATCH (FENTANYL) (FENTANYL) [Concomitant]
  11. PREVACID (LANSOPRAZOLE) (LANSOPRAZOLE) [Concomitant]
  12. SOMA  (CARISOPRODOL) (CARISOPRODOL) [Concomitant]
  13. PHENERGAN (PROMETHAZINE) (PROMETHAZINE) [Concomitant]
  14. BENDADRYL (DIPHENHYDRAMINE HYDROCHLORIDE) (DIPHENHYDRAMINE HYDROCHLORIDE) [Concomitant]
  15. OXYCODONE (OXYCODONE) (OXYCODONE) [Concomitant]
  16. VITAMIN B12 (CYANOCOBALAMIN) (CYANOCOBALAMIN) [Concomitant]
  17. VITAMIN D (ERGOCALCIFEROL) (ERGOCALCIFEROL) [Concomitant]
  18. LISINOPRIL (LISINOPRIL) (LISINOPRIL) [Concomitant]
  19. ENBREL (ETANERCEPT) (ETANERCEPT) [Concomitant]

REACTIONS (4)
  - Angina pectoris [None]
  - Pyrexia [None]
  - Cough [None]
  - Oropharyngeal pain [None]
